FAERS Safety Report 11897465 (Version 2)
Quarter: 2016Q1

REPORT INFORMATION
  Report Type: Spontaneous
  Country: TR (occurrence: TR)
  Receive Date: 20160108
  Receipt Date: 20160211
  Transmission Date: 20160526
  Serious: Yes (Hospitalization, Other)
  Sender: FDA-Public Use
  Company Number: TR-ABBVIE-16K-161-1533565-00

PATIENT
  Age: 28 Year
  Sex: Male
  Weight: 64 kg

DRUGS (2)
  1. IMURAN [Suspect]
     Active Substance: AZATHIOPRINE
     Indication: UVEITIS
     Route: 065
  2. HUMIRA [Suspect]
     Active Substance: ADALIMUMAB
     Indication: UVEITIS
     Route: 058
     Dates: start: 20141204, end: 20151217

REACTIONS (3)
  - Hepatitis viral [Recovered/Resolved]
  - Pancytopenia [Recovered/Resolved]
  - Atrophy of globe [Recovered/Resolved]

NARRATIVE: CASE EVENT DATE: 20151215
